FAERS Safety Report 10816467 (Version 1)
Quarter: 2015Q1

REPORT INFORMATION
  Report Type: Spontaneous
  Country: US (occurrence: US)
  Receive Date: 20150218
  Receipt Date: 20150218
  Transmission Date: 20150721
  Serious: Yes (Death)
  Sender: FDA-Public Use
  Company Number: US-BANPHARM-20153448

PATIENT
  Age: 72 Year
  Sex: Female

DRUGS (1)
  1. AMANTADINE UNKNOWN PRODUCT [Suspect]
     Active Substance: AMANTADINE

REACTIONS (2)
  - Exposure via ingestion [None]
  - Completed suicide [Fatal]
